FAERS Safety Report 7716833-X (Version None)
Quarter: 2011Q3

REPORT INFORMATION
  Report Type: 
  Country: None (occurrence: None)
  Receive Date: 20110829
  Receipt Date: 20110825
  Transmission Date: 20111222
  Serious: Yes (Hospitalization)
  Sender: FDA-Public Use
  Company Number: US-ABBOTT-11P-163-0838447-00

PATIENT
  Sex: Female
  Weight: 53.572 kg

DRUGS (7)
  1. IBUPROFEN [Concomitant]
     Indication: PAIN
  2. HUMIRA [Suspect]
  3. INTEGRA [Concomitant]
     Indication: PRODUCT USED FOR UNKNOWN INDICATION
  4. HUMIRA [Suspect]
     Indication: CROHN'S DISEASE
     Route: 058
     Dates: start: 20110301
  5. FERROUS SULFATE TAB [Concomitant]
     Indication: PRODUCT USED FOR UNKNOWN INDICATION
  6. HUMIRA [Suspect]
     Indication: ARTHRITIS
     Dates: start: 20080101, end: 20090101
  7. PREDNISOLONE ACETATE OPHTHALMIC USP [Concomitant]
     Indication: ULCERATIVE KERATITIS
     Route: 047

REACTIONS (14)
  - ONYCHOMADESIS [None]
  - PYODERMA GANGRENOSUM [None]
  - JOINT RANGE OF MOTION DECREASED [None]
  - NECK PAIN [None]
  - ONYCHOCLASIS [None]
  - INTESTINAL STENOSIS [None]
  - HEADACHE [None]
  - ERYTHEMA [None]
  - JOINT SWELLING [None]
  - CROHN'S DISEASE [None]
  - ARTHRALGIA [None]
  - MUSCULOSKELETAL STIFFNESS [None]
  - NAIL BED INFLAMMATION [None]
  - NODULE [None]
